FAERS Safety Report 25415916 (Version 1)
Quarter: 2025Q2

REPORT INFORMATION
  Report Type: Spontaneous
  Country: JP (occurrence: JP)
  Receive Date: 20250610
  Receipt Date: 20250610
  Transmission Date: 20250717
  Serious: Yes (Hospitalization, Other)
  Sender: STRIDES
  Company Number: JP-STRIDES ARCOLAB LIMITED-2025SP007031

PATIENT
  Age: 43 Year
  Sex: Male

DRUGS (22)
  1. PREDNISONE [Suspect]
     Active Substance: PREDNISONE
     Indication: Metastatic salivary gland cancer
     Route: 048
  2. PREDNISONE [Suspect]
     Active Substance: PREDNISONE
     Indication: Metastases to bone
  3. PREDNISONE [Suspect]
     Active Substance: PREDNISONE
     Indication: Metastases to lymph nodes
  4. PREDNISONE [Suspect]
     Active Substance: PREDNISONE
     Indication: Thrombocytopenia
  5. BICALUTAMIDE [Concomitant]
     Active Substance: BICALUTAMIDE
     Indication: Metastatic salivary gland cancer
     Route: 065
  6. BICALUTAMIDE [Concomitant]
     Active Substance: BICALUTAMIDE
     Indication: Metastases to bone
  7. BICALUTAMIDE [Concomitant]
     Active Substance: BICALUTAMIDE
     Indication: Metastases to lymph nodes
  8. LEUPROLIDE ACETATE [Concomitant]
     Active Substance: LEUPROLIDE ACETATE
     Indication: Metastatic salivary gland cancer
     Route: 065
  9. LEUPROLIDE ACETATE [Concomitant]
     Active Substance: LEUPROLIDE ACETATE
     Indication: Metastases to bone
  10. LEUPROLIDE ACETATE [Concomitant]
     Active Substance: LEUPROLIDE ACETATE
     Indication: Metastases to lymph nodes
  11. DOCETAXEL [Concomitant]
     Active Substance: DOCETAXEL
     Indication: Metastatic salivary gland cancer
     Route: 065
  12. DOCETAXEL [Concomitant]
     Active Substance: DOCETAXEL
     Indication: Metastases to bone
  13. DOCETAXEL [Concomitant]
     Active Substance: DOCETAXEL
     Indication: Metastases to lymph nodes
  14. CARBOPLATIN [Concomitant]
     Active Substance: CARBOPLATIN
     Indication: Metastatic salivary gland cancer
     Route: 065
  15. CARBOPLATIN [Concomitant]
     Active Substance: CARBOPLATIN
     Indication: Metastases to bone
  16. CARBOPLATIN [Concomitant]
     Active Substance: CARBOPLATIN
     Indication: Metastases to lymph nodes
  17. DABRAFENIB [Concomitant]
     Active Substance: DABRAFENIB
     Indication: Metastatic salivary gland cancer
     Route: 065
  18. DABRAFENIB [Concomitant]
     Active Substance: DABRAFENIB
     Indication: Metastases to bone
  19. DABRAFENIB [Concomitant]
     Active Substance: DABRAFENIB
     Indication: Metastases to lymph nodes
  20. TRAMETINIB [Concomitant]
     Active Substance: TRAMETINIB
     Indication: Metastatic salivary gland cancer
     Route: 065
  21. TRAMETINIB [Concomitant]
     Active Substance: TRAMETINIB
     Indication: Metastases to bone
  22. TRAMETINIB [Concomitant]
     Active Substance: TRAMETINIB
     Indication: Metastases to lymph nodes

REACTIONS (2)
  - Condition aggravated [Unknown]
  - Drug ineffective for unapproved indication [Unknown]
